FAERS Safety Report 7324042-1 (Version None)
Quarter: 2011Q1

REPORT INFORMATION
  Report Type: 
  Country: None (occurrence: None)
  Receive Date: 20110217
  Receipt Date: 20110210
  Transmission Date: 20110831
  Serious: Yes (Other)
  Sender: FDA-Public Use
  Company Number: 009134

PATIENT
  Sex: Female
  Weight: 84.9 kg

DRUGS (6)
  1. TEMAZEPAM [Concomitant]
  2. CERTOLIZUMAB PEGOL [Suspect]
     Indication: RHEUMATOID ARTHRITIS
     Dosage: 400 MG 1X2 WEEKS, SUBCUTANEOUS
     Route: 058
     Dates: start: 20100112, end: 20100315
  3. METHOTREXATE [Concomitant]
  4. MOBIC [Concomitant]
  5. PREVACID [Concomitant]
  6. FOLIC ACID [Concomitant]

REACTIONS (2)
  - MYCOBACTERIUM TUBERCULOSIS COMPLEX TEST POSITIVE [None]
  - LATENT TUBERCULOSIS [None]
